FAERS Safety Report 4303090-X (Version None)
Quarter: 2004Q1

REPORT INFORMATION
  Report Type: 
  Country: None (occurrence: None)
  Receive Date: 20040126
  Receipt Date: 20030929
  Transmission Date: 20041129
  Serious: No
  Sender: FDA-Public Use
  Company Number: USA030948538

PATIENT
  Age: 7 Year
  Sex: Male
  Weight: 26 kg

DRUGS (1)
  1. STRATTERA [Suspect]
     Indication: ATTENTION DEFICIT/HYPERACTIVITY DISORDER
     Dosage: 25 MG/IN THE EVENING
     Dates: start: 20030701

REACTIONS (4)
  - AGGRESSION [None]
  - DISTURBANCE IN ATTENTION [None]
  - DRUG EFFECT DECREASED [None]
  - PSYCHOMOTOR HYPERACTIVITY [None]
